FAERS Safety Report 15779899 (Version 2)
Quarter: 2019Q1

REPORT INFORMATION
  Report Type: Spontaneous
  Country: CN (occurrence: CN)
  Receive Date: 20190102
  Receipt Date: 20190104
  Transmission Date: 20190417
  Serious: Yes (Other)
  Sender: FDA-Public Use
  Company Number: CN-ROCHE-2237567

PATIENT
  Age: 57 Year
  Sex: Female

DRUGS (16)
  1. OXALIPLATIN. [Concomitant]
     Active Substance: OXALIPLATIN
     Route: 041
     Dates: start: 20160408, end: 20161114
  2. IRINOTECAN [Concomitant]
     Active Substance: IRINOTECAN
     Route: 065
     Dates: start: 20170721, end: 20180102
  3. CALCIUM FOLINATE [Concomitant]
     Active Substance: LEUCOVORIN CALCIUM
     Route: 065
     Dates: start: 20180123, end: 20180126
  4. 5-FLUOROURACIL [Concomitant]
     Active Substance: FLUOROURACIL
     Route: 065
     Dates: start: 20170721, end: 20180102
  5. 5-FLUOROURACIL [Concomitant]
     Active Substance: FLUOROURACIL
     Route: 065
     Dates: start: 20151207, end: 20160111
  6. AVASTIN [Suspect]
     Active Substance: BEVACIZUMAB
     Indication: METASTASES TO LIVER
  7. XELODA [Suspect]
     Active Substance: CAPECITABINE
     Dosage: FROM DAY 1 TO DAY 14
     Route: 048
     Dates: start: 20160408, end: 20161114
  8. CALCIUM FOLINATE [Concomitant]
     Active Substance: LEUCOVORIN CALCIUM
     Route: 065
     Dates: start: 20170721, end: 20180102
  9. XELODA [Suspect]
     Active Substance: CAPECITABINE
     Indication: RECTAL ADENOCARCINOMA
     Dosage: FROM 1ST WEEK TO 5TH WEEK
     Route: 048
     Dates: start: 20151207, end: 20160111
  10. 5-FLUOROURACIL [Concomitant]
     Active Substance: FLUOROURACIL
     Route: 065
     Dates: start: 20180123, end: 20180126
  11. AVASTIN [Suspect]
     Active Substance: BEVACIZUMAB
     Indication: METASTASES TO LUNG
     Route: 065
     Dates: start: 20170721, end: 20180102
  12. AVASTIN [Suspect]
     Active Substance: BEVACIZUMAB
     Indication: RECTAL ADENOCARCINOMA
     Route: 065
     Dates: start: 20180123, end: 20180126
  13. CALCIUM FOLINATE [Concomitant]
     Active Substance: LEUCOVORIN CALCIUM
     Route: 065
     Dates: start: 20160418, end: 20160814
  14. 5-FLUOROURACIL [Concomitant]
     Active Substance: FLUOROURACIL
     Route: 065
     Dates: start: 20160418, end: 20160814
  15. IRINOTECAN [Concomitant]
     Active Substance: IRINOTECAN
     Route: 065
     Dates: start: 20180123, end: 20180126
  16. IRINOTECAN [Concomitant]
     Active Substance: IRINOTECAN
     Route: 065
     Dates: start: 20180123, end: 20180126

REACTIONS (1)
  - Bone marrow failure [Recovered/Resolved]

NARRATIVE: CASE EVENT DATE: 2016
